FAERS Safety Report 10625077 (Version 1)
Quarter: 2014Q4

REPORT INFORMATION
  Report Type: Spontaneous
  Country: FR (occurrence: None)
  Receive Date: 20141126
  Receipt Date: 20141126
  Transmission Date: 20150529
  Serious: Yes (Life-Threatening, Hospitalization, Disabling)
  Sender: FDA-Public Use
  Company Number: LIT-118-14-FR

PATIENT
  Age: 18 Month
  Sex: Female

DRUGS (5)
  1. ALBUMIN [Concomitant]
     Active Substance: ALBUMIN (HUMAN)
  2. CEPHALOSPORIN [Concomitant]
     Active Substance: UNSPECIFIED INGREDIENT
  3. HUMAN NORMAL IMMUNOGLOBULIN (IV) (TRADENAME UNKNOWN) [Suspect]
     Active Substance: HUMAN IMMUNOGLOBULIN G
     Indication: KAWASAKI^S DISEASE
     Dosage: NOT OTHERWISE SPECIFIED
     Route: 042
  4. RED BLOOD CELLS [Concomitant]
     Active Substance: HUMAN RED BLOOD CELL
  5. ACETYLSALICYLIC ACID [Concomitant]
     Active Substance: ASPIRIN

REACTIONS (7)
  - VIIth nerve paralysis [None]
  - Carotid artery occlusion [None]
  - Hemianopia homonymous [None]
  - Hemiplegia [None]
  - Eyelid ptosis [None]
  - Cerebral infarction [None]
  - Thrombocytopenia [None]
